FAERS Safety Report 4382498-0 (Version None)
Quarter: 2004Q2

REPORT INFORMATION
  Report Type: 
  Country: None (occurrence: None)
  Receive Date: 20040607
  Receipt Date: 20040521
  Transmission Date: 20050107
  Serious: Yes (Hospitalization)
  Sender: FDA-Public Use
  Company Number: 2004-02029

PATIENT
  Age: 57 Year
  Sex: Male

DRUGS (1)
  1. IMMUCYST (BCG- IT (CONNAUGHT) ), AVENTIS PASTEUR LTD., [Suspect]
     Indication: URETERIC CANCER
     Dates: start: 20040414, end: 20040423

REACTIONS (2)
  - ARTHRITIS [None]
  - PYREXIA [None]
